FAERS Safety Report 26146880 (Version 1)
Quarter: 2025Q4

REPORT INFORMATION
  Report Type: Spontaneous
  Country: US (occurrence: US)
  Receive Date: 20251211
  Receipt Date: 20251211
  Transmission Date: 20260118
  Serious: No
  Sender: Krystal Biotech
  Company Number: US-KRYSTAL BIOTECH-2025KRYUS00195

PATIENT
  Age: 18 Year
  Sex: Male

DRUGS (1)
  1. VYJUVEK [Suspect]
     Active Substance: BEREMAGENE GEPERPAVEC-SVDT
     Indication: Epidermolysis bullosa
     Dosage: UNK

REACTIONS (1)
  - Purulent discharge [Recovered/Resolved]

NARRATIVE: CASE EVENT DATE: 20251112
